FAERS Safety Report 15143089 (Version 7)
Quarter: 2025Q1

REPORT INFORMATION
  Report Type: Spontaneous
  Country: PL (occurrence: PL)
  Receive Date: 20180713
  Receipt Date: 20250108
  Transmission Date: 20250408
  Serious: Yes (Other)
  Sender: MYLAN
  Company Number: PL-TEVA-2018-PL-877156

PATIENT
  Age: 15 Year
  Sex: Female

DRUGS (1)
  1. ISOTRETINOIN [Suspect]
     Active Substance: ISOTRETINOIN
     Indication: Acne
     Dosage: 0.8 MILLIGRAM/KILOGRAM, QD
     Route: 048

REACTIONS (8)
  - Chalazion [Recovered/Resolved]
  - Eye pain [Recovering/Resolving]
  - Visual impairment [Recovering/Resolving]
  - Lacrimation increased [Recovering/Resolving]
  - Ocular hyperaemia [Recovering/Resolving]
  - Photophobia [Recovering/Resolving]
  - Keratitis [Recovered/Resolved]
  - Conjunctivitis [Recovered/Resolved]
